FAERS Safety Report 5733711-6 (Version None)
Quarter: 2008Q2

REPORT INFORMATION
  Report Type: 
  Country: None (occurrence: None)
  Receive Date: 20080509
  Receipt Date: 20080430
  Transmission Date: 20081010
  Serious: Yes (Death, Hospitalization, Disabling)
  Sender: FDA-Public Use
  Company Number: US-PFIZER INC-2006121053

PATIENT
  Sex: Female
  Weight: 49.9 kg

DRUGS (4)
  1. CELEBREX [Suspect]
     Indication: PAIN
     Route: 048
     Dates: start: 20050101, end: 20051027
  2. BEXTRA [Suspect]
     Indication: PAIN
     Route: 048
     Dates: start: 20011101, end: 20020901
  3. VIOXX [Suspect]
     Indication: ARTHRITIS
     Route: 048
     Dates: start: 20010401, end: 20040901
  4. VIOXX [Suspect]
     Indication: PAIN

REACTIONS (1)
  - MYOCARDIAL INFARCTION [None]
